FAERS Safety Report 8654181 (Version 4)
Quarter: 2012Q4

REPORT INFORMATION
  Report Type: Report from Study
  Country: US (occurrence: US)
  Receive Date: 20120709
  Receipt Date: 20121010
  Transmission Date: 20130627
  Serious: Yes (Hospitalization)
  Sender: FDA-Public Use
  Company Number: US-JNJFOC-20120700397

PATIENT
  Age: 17 Year
  Sex: Female
  Weight: 43.55 kg

DRUGS (8)
  1. REMICADE [Suspect]
     Indication: CROHN^S DISEASE
     Route: 042
     Dates: start: 20120329
  2. REMICADE [Suspect]
     Indication: CROHN^S DISEASE
     Route: 042
     Dates: start: 20120413
  3. REMICADE [Suspect]
     Indication: CROHN^S DISEASE
     Route: 042
     Dates: start: 20120511, end: 20120511
  4. ZOFRAN [Concomitant]
     Indication: NAUSEA
  5. ENTOCORT [Concomitant]
     Indication: CROHN^S DISEASE
     Dates: end: 20120401
  6. FERROUS SULFATE [Concomitant]
     Indication: HAEMOGLOBIN DECREASED
  7. MULTIVITAMINS [Concomitant]
  8. MERCAPTOPURINE [Concomitant]
     Indication: CROHN^S DISEASE

REACTIONS (20)
  - Haemoglobin decreased [Not Recovered/Not Resolved]
  - Crohn^s disease [Unknown]
  - Pyrexia [Not Recovered/Not Resolved]
  - Infection [Unknown]
  - Migraine [Recovered/Resolved]
  - Hypokalaemia [Unknown]
  - Depression [Recovering/Resolving]
  - Abdominal pain upper [Not Recovered/Not Resolved]
  - Chills [Unknown]
  - Road traffic accident [Unknown]
  - Tremor [Recovered/Resolved]
  - Tenderness [Unknown]
  - Headache [Recovered/Resolved]
  - Vomiting [Recovered/Resolved]
  - Pain [Recovered/Resolved]
  - Nausea [Recovered/Resolved]
  - Fatigue [Unknown]
  - Post-traumatic neck syndrome [Unknown]
  - Back pain [Unknown]
  - Malaise [Unknown]
